FAERS Safety Report 4330113-4 (Version None)
Quarter: 2004Q1

REPORT INFORMATION
  Report Type: 
  Country: None (occurrence: None)
  Receive Date: 20040329
  Receipt Date: 20031212
  Transmission Date: 20041129
  Serious: No
  Sender: FDA-Public Use
  Company Number: 03P-163-0244487-00

PATIENT
  Sex: Female

DRUGS (1)
  1. HUMIRA [Suspect]
     Dosage: 40 MG, 1 IN 2 WK, SUBCUTANEOUS
     Route: 058
     Dates: start: 20030101, end: 20030101

REACTIONS (3)
  - BACK PAIN [None]
  - HEADACHE [None]
  - RASH [None]
